FAERS Safety Report 6169382-7 (Version None)
Quarter: 2009Q2

REPORT INFORMATION
  Report Type: 
  Country: None (occurrence: None)
  Receive Date: 20090424
  Receipt Date: 20090422
  Transmission Date: 20091009
  Serious: Yes (Life-Threatening)
  Sender: FDA-Public Use
  Company Number: 2009TJ0009FU1

PATIENT
  Age: 7 Year
  Sex: Female

DRUGS (1)
  1. TWINJECT 0.15 [Suspect]
     Indication: ANAPHYLACTIC REACTION
     Dosage: 0.15 MG, PRN
     Dates: start: 20090103, end: 20090103

REACTIONS (2)
  - DRUG INEFFECTIVE [None]
  - TREATMENT FAILURE [None]
